FAERS Safety Report 18820013 (Version 1)
Quarter: 2021Q1

REPORT INFORMATION
  Report Type: Spontaneous
  Country: CA (occurrence: CA)
  Receive Date: 20210202
  Receipt Date: 20210202
  Transmission Date: 20210419
  Serious: Yes (Other)
  Sender: FDA-Public Use
  Company Number: NVSC2021CA021113

PATIENT
  Age: 68 Year

DRUGS (1)
  1. XIIDRA [Suspect]
     Active Substance: LIFITEGRAST
     Indication: DRY EYE
     Dosage: 1 DRP, BID
     Route: 047

REACTIONS (6)
  - Eyelid irritation [Unknown]
  - Lacrimation increased [Unknown]
  - Periorbital swelling [Unknown]
  - Abnormal sensation in eye [Unknown]
  - Eye pain [Unknown]
  - Vision blurred [Unknown]
